FAERS Safety Report 21875571 (Version 2)
Quarter: 2023Q1

REPORT INFORMATION
  Report Type: Spontaneous
  Country: US (occurrence: US)
  Receive Date: 20230118
  Receipt Date: 20230227
  Transmission Date: 20230417
  Serious: No
  Sender: FDA-Public Use
  Company Number: US-ELI_LILLY_AND_COMPANY-US202212011283

PATIENT
  Age: 62 Year
  Sex: Female

DRUGS (5)
  1. TALTZ [Suspect]
     Active Substance: IXEKIZUMAB
     Indication: Product used for unknown indication
     Dosage: UNK UNK, UNKNOWN
     Route: 065
     Dates: start: 20190826, end: 20220907
  2. TALTZ [Suspect]
     Active Substance: IXEKIZUMAB
     Dosage: UNK UNK, UNKNOWN
     Route: 065
     Dates: start: 202212
  3. BETAMETHASONE [Concomitant]
     Active Substance: BETAMETHASONE
     Dosage: UNK, PRN
  4. CLOBETASOL [Concomitant]
     Active Substance: CLOBETASOL
     Dosage: UNK, PRN
  5. IBUPROFEN [Concomitant]
     Active Substance: IBUPROFEN
     Dosage: 200 MG, BID

REACTIONS (1)
  - Mycobacterium tuberculosis complex test positive [Unknown]

NARRATIVE: CASE EVENT DATE: 20220810
